FAERS Safety Report 11030978 (Version 2)
Quarter: 2015Q3

REPORT INFORMATION
  Report Type: Spontaneous
  Country: US (occurrence: US)
  Receive Date: 20150415
  Receipt Date: 20150709
  Transmission Date: 20151125
  Serious: No
  Sender: FDA-Public Use
  Company Number: US-SA-2015SA039389

PATIENT
  Age: 62 Year
  Sex: Male

DRUGS (5)
  1. RECOMBINANT HUMAN INSULIN [Interacting]
     Active Substance: INSULIN HUMAN
     Route: 065
  2. LANTUS SOLOSTAR [Interacting]
     Active Substance: INSULIN GLARGINE
     Indication: DIABETES MELLITUS
     Dosage: DOSE: 20-40 UNITS, UP TO 90 U BID
     Route: 065
     Dates: start: 2005
  3. APIDRA [Suspect]
     Active Substance: INSULIN GLULISINE
     Route: 065
  4. NOVOLOG [Suspect]
     Active Substance: INSULIN ASPART
     Route: 065
  5. HUMALOG [Suspect]
     Active Substance: INSULIN LISPRO
     Route: 065

REACTIONS (4)
  - Drug administration error [Unknown]
  - Rash [Not Recovered/Not Resolved]
  - Drug interaction [Unknown]
  - Pruritus [Not Recovered/Not Resolved]
